FAERS Safety Report 4969754-X (Version None)
Quarter: 2006Q2

REPORT INFORMATION
  Report Type: 
  Country: None (occurrence: None)
  Receive Date: 20060411
  Receipt Date: 20050429
  Transmission Date: 20061013
  Serious: Yes (Disabling)
  Sender: FDA-Public Use
  Company Number: US-MERCK-0505USA00392

PATIENT
  Age: 45 Year
  Sex: Female
  Weight: 105 kg

DRUGS (3)
  1. VIOXX [Suspect]
     Indication: HEADACHE
     Route: 048
     Dates: start: 20000101, end: 20000107
  2. VIOXX [Suspect]
     Route: 048
     Dates: start: 20000108, end: 20000122
  3. VIOXX [Suspect]
     Route: 048
     Dates: start: 20000123, end: 20000201

REACTIONS (8)
  - CARDIOMYOPATHY [None]
  - CEREBROVASCULAR ACCIDENT [None]
  - CONDITION AGGRAVATED [None]
  - EJECTION FRACTION DECREASED [None]
  - FINGER AMPUTATION [None]
  - PRESCRIBED OVERDOSE [None]
  - SKIN ULCER [None]
  - THROMBOSIS [None]
